FAERS Safety Report 21652738 (Version 2)
Quarter: 2023Q4

REPORT INFORMATION
  Report Type: Spontaneous
  Country: NO (occurrence: NO)
  Receive Date: 20221128
  Receipt Date: 20231009
  Transmission Date: 20240110
  Serious: Yes (Other)
  Sender: FDA-Public Use
  Company Number: NO-MYLANLABS-2022M1131981

PATIENT
  Age: 41 Year
  Sex: Male

DRUGS (12)
  1. LYRICA [Suspect]
     Active Substance: PREGABALIN
     Indication: Product used for unknown indication
     Dosage: UNK
     Route: 065
     Dates: start: 20141203, end: 20220801
  2. PALEXIA [Suspect]
     Active Substance: TAPENTADOL HYDROCHLORIDE
     Indication: Product used for unknown indication
     Dosage: UNK
     Route: 065
  3. OXYCODONE HYDROCHLORIDE [Concomitant]
     Active Substance: OXYCODONE HYDROCHLORIDE
     Dosage: UNK
     Route: 065
  4. Paralgin forte [Concomitant]
     Dosage: UNK
     Route: 065
  5. DIAZEPAM [Concomitant]
     Active Substance: DIAZEPAM
     Dosage: UNK
     Route: 065
  6. PALEXIA [Concomitant]
     Active Substance: TAPENTADOL HYDROCHLORIDE
     Dosage: UNK
     Route: 065
  7. ACTIVA [Concomitant]
     Dosage: UNK
     Route: 065
  8. Neurotin [Concomitant]
     Indication: Pain
     Dosage: UNK
     Route: 065
  9. AMITRIPTYLINE HYDROCHLORIDE [Concomitant]
     Active Substance: AMITRIPTYLINE HYDROCHLORIDE
     Dosage: UNK
     Route: 065
  10. CIPRALEX [Concomitant]
     Active Substance: ESCITALOPRAM OXALATE
     Indication: Depression
     Dosage: UNK
     Route: 065
  11. AMPHETAMINE [Concomitant]
     Active Substance: AMPHETAMINE
     Dosage: UNK
     Route: 065
  12. NORSPAN [Concomitant]
     Active Substance: BUPRENORPHINE
     Dosage: UNK
     Route: 065

REACTIONS (6)
  - Tooth injury [Not Recovered/Not Resolved]
  - Dry mouth [Unknown]
  - Toothache [Unknown]
  - Dental attrition [Unknown]
  - Tooth erosion [Unknown]
  - Salivary gland disorder [Unknown]

NARRATIVE: CASE EVENT DATE: 20150115
